FAERS Safety Report 5932812-7 (Version None)
Quarter: 2008Q4

REPORT INFORMATION
  Report Type: 
  Country: None (occurrence: None)
  Receive Date: 20081028
  Receipt Date: 20081027
  Transmission Date: 20090506
  Serious: Yes (Other)
  Sender: FDA-Public Use
  Company Number: D0059202A

PATIENT

DRUGS (1)
  1. TELZIR [Suspect]
     Indication: HIV INFECTION
     Route: 048

REACTIONS (1)
  - HEPATIC ENZYME INCREASED [None]
